FAERS Safety Report 8910645 (Version 2)
Quarter: 2013Q1

REPORT INFORMATION
  Report Type: Spontaneous
  Country: IT (occurrence: None)
  Receive Date: 20121108
  Receipt Date: 20121218
  Transmission Date: 20140127
  Serious: Yes (Hospitalization)
  Sender: FDA-Public Use
  Company Number: DSA_60689_2012

PATIENT
  Age: 82 Year
  Sex: Male

DRUGS (3)
  1. ENAPREN [Suspect]
     Indication: HYPERTENSION
     Route: 048
     Dates: start: 20080101, end: 20120918
  2. LASIX /00032601/ [Suspect]
     Indication: HYPERTENSION
     Dosage: NOT AS PRESCRIBED
     Route: 048
     Dates: start: 20120910, end: 20120918
  3. COUMADIN /00014802/ [Concomitant]

REACTIONS (4)
  - Incorrect dose administered [None]
  - Renal failure acute [None]
  - Hyponatraemia [None]
  - Hyperkalaemia [None]
